FAERS Safety Report 13804139 (Version 2)
Quarter: 2017Q3

REPORT INFORMATION
  Report Type: Report from Study
  Country: None (occurrence: BR)
  Receive Date: 20170728
  Receipt Date: 20170805
  Transmission Date: 20171127
  Serious: Yes (Other)
  Sender: FDA-Public Use
  Company Number: BR-ABBVIE-14K-020-1283605-00

PATIENT
  Age: 36 Year
  Sex: Male
  Weight: 74 kg

DRUGS (2)
  1. HUMIRA [Suspect]
     Active Substance: ADALIMUMAB
     Indication: ANKYLOSING SPONDYLITIS
     Route: 058
     Dates: start: 20140808
  2. CLAVULIN [Suspect]
     Active Substance: AMOXICILLIN\CLAVULANIC ACID
     Indication: SINUSITIS
     Route: 048
     Dates: start: 20140824, end: 20140907

REACTIONS (10)
  - Dyspnoea [Recovered/Resolved]
  - Nasopharyngitis [Recovered/Resolved]
  - Therapeutic response shortened [Not Recovered/Not Resolved]
  - Swelling face [Recovered/Resolved]
  - Herpes virus infection [Recovering/Resolving]
  - Pyrexia [Recovered/Resolved]
  - Obstructive airways disorder [Recovered/Resolved]
  - Immunodeficiency [Recovered/Resolved]
  - Erythema [Recovered/Resolved]
  - Chronic sinusitis [Recovering/Resolving]

NARRATIVE: CASE EVENT DATE: 201408
